FAERS Safety Report 6659834-5 (Version None)
Quarter: 2010Q1

REPORT INFORMATION
  Report Type: 
  Country: None (occurrence: None)
  Receive Date: 20100330
  Receipt Date: 20100330
  Transmission Date: 20100710
  Serious: No
  Sender: FDA-Public Use
  Company Number: None

PATIENT
  Sex: Male
  Weight: 92.9874 kg

DRUGS (1)
  1. SPIRIVA [Suspect]
     Dosage: DAILY
     Dates: start: 20020201, end: 20080201

REACTIONS (1)
  - URINARY TRACT DISORDER [None]
